FAERS Safety Report 22382331 (Version 1)
Quarter: 2023Q2

REPORT INFORMATION
  Report Type: Report from Study
  Country: CA (occurrence: CA)
  Receive Date: 20230530
  Receipt Date: 20230530
  Transmission Date: 20230722
  Serious: Yes (Other)
  Sender: FDA-Public Use
  Company Number: CA-ABBVIE-5179059

PATIENT
  Age: 47 Year
  Sex: Female

DRUGS (2)
  1. SKYRIZI [Suspect]
     Active Substance: RISANKIZUMAB-RZAA
     Indication: Psoriasis
     Dosage: STOP DATE 2023
     Route: 058
     Dates: start: 20230509
  2. SUBOXONE [Concomitant]
     Active Substance: BUPRENORPHINE HYDROCHLORIDE\NALOXONE HYDROCHLORIDE
     Indication: Product used for unknown indication
     Route: 065

REACTIONS (16)
  - Intestinal obstruction [Unknown]
  - Contusion [Unknown]
  - Joint range of motion decreased [Unknown]
  - Fall [Unknown]
  - Musculoskeletal disorder [Unknown]
  - Skin fissures [Unknown]
  - Psoriatic arthropathy [Unknown]
  - Emphysema [Unknown]
  - Visual impairment [Unknown]
  - Drug ineffective [Unknown]
  - Gait inability [Unknown]
  - Ocular discomfort [Unknown]
  - Grip strength decreased [Unknown]
  - Cardiac disorder [Unknown]
  - Renal disorder [Unknown]
  - Lung disorder [Unknown]

NARRATIVE: CASE EVENT DATE: 20230501
